FAERS Safety Report 8463914-1 (Version None)
Quarter: 2012Q2

REPORT INFORMATION
  Report Type: 
  Country: None (occurrence: None)
  Receive Date: 20120625
  Receipt Date: 20120613
  Transmission Date: 20120825
  Serious: Yes (Hospitalization)
  Sender: FDA-Public Use
  Company Number: JP-ELI_LILLY_AND_COMPANY-JP201205007258

PATIENT
  Age: 65 Year
  Sex: Female

DRUGS (1)
  1. FORTEO [Suspect]
     Dosage: UNK UNK, QD
     Route: 058
     Dates: start: 20120515, end: 20120522

REACTIONS (2)
  - ABDOMINAL PAIN UPPER [None]
  - GASTRIC ULCER [None]
